FAERS Safety Report 20603684 (Version 1)
Quarter: 2022Q1

REPORT INFORMATION
  Report Type: Spontaneous
  Country: DE (occurrence: DE)
  Receive Date: 20220316
  Receipt Date: 20220316
  Transmission Date: 20220423
  Serious: Yes (Other)
  Sender: FDA-Public Use
  Company Number: DE-BAYER-2021-094967

PATIENT
  Sex: Female

DRUGS (1)
  1. KYLEENA [Suspect]
     Active Substance: LEVONORGESTREL
     Dosage: 17.5?G/DAY
     Route: 015
     Dates: start: 20210202

REACTIONS (4)
  - Pregnancy with contraceptive device [Recovered/Resolved]
  - Placenta praevia [Recovered/Resolved]
  - Placental disorder [Recovered/Resolved]
  - Drug ineffective [None]
